FAERS Safety Report 15278911 (Version 1)
Quarter: 2018Q3

REPORT INFORMATION
  Report Type: Spontaneous
  Country: GB (occurrence: GB)
  Receive Date: 20180815
  Receipt Date: 20180815
  Transmission Date: 20181010
  Serious: Yes (Other)
  Sender: FDA-Public Use
  Company Number: GB-B.I. PHARMACEUTICALS,INC./RIDGEFIELD-2018-BI-021633

PATIENT
  Sex: Male

DRUGS (3)
  1. LANSOPRAZOLE. [Concomitant]
     Active Substance: LANSOPRAZOLE
     Indication: GASTROOESOPHAGEAL REFLUX DISEASE
     Dosage: 56 CAPSULE
     Route: 065
     Dates: start: 20180315, end: 20180516
  2. CLOPIDOGREL [Concomitant]
     Active Substance: CLOPIDOGREL BISULFATE
     Indication: PRODUCT USED FOR UNKNOWN INDICATION
     Route: 065
     Dates: start: 20180703
  3. TRAJENTA [Suspect]
     Active Substance: LINAGLIPTIN
     Indication: PRODUCT USED FOR UNKNOWN INDICATION
     Route: 065
     Dates: end: 20180418

REACTIONS (4)
  - Liver function test increased [Unknown]
  - Hyperhidrosis [Unknown]
  - Skin ulcer [Recovered/Resolved]
  - Cholangiocarcinoma [Not Recovered/Not Resolved]

NARRATIVE: CASE EVENT DATE: 20180418
